FAERS Safety Report 9951026 (Version 1)
Quarter: 2014Q1

REPORT INFORMATION
  Report Type: Spontaneous
  Country: US (occurrence: US)
  Receive Date: 20140304
  Receipt Date: 20140304
  Transmission Date: 20141002
  Serious: No
  Sender: FDA-Public Use
  Company Number: US-AMGEN-USASP2014007183

PATIENT
  Age: 51 Year
  Sex: Female
  Weight: 81.63 kg

DRUGS (11)
  1. ENBREL [Suspect]
     Indication: PRODUCT USED FOR UNKNOWN INDICATION
     Dosage: 50 MG, QWK
     Route: 058
     Dates: end: 20140103
  2. FUROSEMIDE [Concomitant]
     Dosage: 20 MG, UNK
     Route: 048
  3. LYRICA [Concomitant]
     Dosage: 25 MG, UNK
     Route: 048
  4. CLONAZEPAM [Concomitant]
     Dosage: 1 MG, UNK
     Route: 048
  5. OMEPRAZOLE [Concomitant]
     Dosage: 40 MG, UNK
     Route: 048
  6. PRAVASTATIN [Concomitant]
     Dosage: 20 MG, UNK
     Route: 048
  7. FENOFIBRATE [Concomitant]
     Dosage: 160 MG, UNK
     Route: 048
  8. METOPROLOL [Concomitant]
     Dosage: 200 MG, UNK
     Route: 048
  9. BUTALBITAL [Concomitant]
     Dosage: UNK
     Route: 048
  10. FLUOXETINE [Concomitant]
     Dosage: 20 MG, UNK
     Route: 048
  11. HYDROCODONE W/APAP                 /01554201/ [Concomitant]
     Dosage: UNK, 7.5-325
     Route: 048

REACTIONS (4)
  - Drug effect decreased [Unknown]
  - Fall [Unknown]
  - Neck injury [Unknown]
  - Joint injury [Unknown]
